FAERS Safety Report 13549381 (Version 4)
Quarter: 2019Q1

REPORT INFORMATION
  Report Type: Spontaneous
  Country: US (occurrence: US)
  Receive Date: 20170516
  Receipt Date: 20190113
  Transmission Date: 20190417
  Serious: Yes (Hospitalization)
  Sender: FDA-Public Use
  Company Number: US-TEVA-767645ACC

PATIENT
  Sex: Male

DRUGS (10)
  1. COPAXONE [Suspect]
     Active Substance: GLATIRAMER ACETATE
     Dosage: PEN
     Route: 058
     Dates: start: 20150318
  2. VITAMIN D3 [Concomitant]
     Active Substance: CHOLECALCIFEROL
  3. SUPER B 50 [Concomitant]
  4. CENTRUM [Concomitant]
     Active Substance: VITAMINS
  5. FISH OIL [Concomitant]
     Active Substance: FISH OIL
  6. COPAXONE [Suspect]
     Active Substance: GLATIRAMER ACETATE
     Indication: MULTIPLE SCLEROSIS
     Route: 058
     Dates: start: 20150226
  7. MAGNESIUM [Concomitant]
     Active Substance: MAGNESIUM
  8. VESICARE [Concomitant]
     Active Substance: SOLIFENACIN SUCCINATE
  9. CLONAZEPAM. [Concomitant]
     Active Substance: CLONAZEPAM
  10. FINASTERIDE. [Concomitant]
     Active Substance: FINASTERIDE

REACTIONS (3)
  - Wrist fracture [Not Recovered/Not Resolved]
  - Joint injury [Not Recovered/Not Resolved]
  - Fall [Unknown]
